FAERS Safety Report 14083169 (Version 3)
Quarter: 2018Q1

REPORT INFORMATION
  Report Type: Report from Study
  Country: None (occurrence: DE)
  Receive Date: 20171012
  Receipt Date: 20180222
  Transmission Date: 20180508
  Serious: Yes (Death, Hospitalization)
  Sender: FDA-Public Use
  Company Number: DE-ABBVIE-17K-062-2129551-00

PATIENT
  Sex: Male

DRUGS (1)
  1. DUODOPA [Suspect]
     Active Substance: CARBIDOPA\LEVODOPA
     Indication: PARKINSON^S DISEASE
     Dosage: MD 6.0 ML; CRD 4.1 ML/H; CRN 4.1 ML/H, ED 1.5 ML
     Route: 050
     Dates: start: 20150216

REACTIONS (2)
  - General physical health deterioration [Fatal]
  - Mobility decreased [Fatal]
